FAERS Safety Report 8034408-2 (Version None)
Quarter: 2012Q1

REPORT INFORMATION
  Report Type: 
  Country: None (occurrence: None)
  Receive Date: 20120110
  Receipt Date: 20120103
  Transmission Date: 20120608
  Serious: Yes (Hospitalization, Other)
  Sender: FDA-Public Use
  Company Number: US-ELI_LILLY_AND_COMPANY-US201201001044

PATIENT
  Age: 50 Year
  Sex: Male

DRUGS (15)
  1. HUMULIN R [Suspect]
     Indication: DIABETES MELLITUS
     Dosage: 0.12 U, UNKNOWN
  2. HUMULIN 70/30 [Suspect]
     Indication: DIABETES MELLITUS
     Dosage: UNK, UNKNOWN
  3. MULTI-VITAMIN [Concomitant]
     Dosage: UNK
  4. METFORMIN HCL [Concomitant]
  5. LISINOPRIL [Concomitant]
     Dosage: UNK
  6. AMIODARONE HCL [Concomitant]
     Indication: PACEMAKER SYNDROME
     Dosage: UNK
  7. COREG [Concomitant]
     Dosage: UNK
  8. NOVOLOG [Concomitant]
  9. LASIX [Concomitant]
  10. HUMULIN R [Suspect]
     Dosage: 0.16 U, UNKNOWN
  11. COUMADIN [Concomitant]
     Dosage: UNK
  12. FUROSEMIDE [Concomitant]
     Dosage: UNK
  13. DIGOXIN [Concomitant]
     Dosage: UNK
  14. MAGNESIUM [Concomitant]
     Dosage: UNK
  15. POTASSIUM CHLORIDE [Concomitant]
     Dosage: UNK

REACTIONS (16)
  - IMPLANTABLE DEFIBRILLATOR INSERTION [None]
  - BLOOD GLUCOSE DECREASED [None]
  - OEDEMA [None]
  - OEDEMA PERIPHERAL [None]
  - CARDIAC FAILURE CONGESTIVE [None]
  - DEVICE MALFUNCTION [None]
  - HAEMORRHAGE [None]
  - STAPHYLOCOCCAL INFECTION [None]
  - CARDIAC PACEMAKER INSERTION [None]
  - CONFUSIONAL STATE [None]
  - DIZZINESS [None]
  - INCORRECT DOSE ADMINISTERED [None]
  - FATIGUE [None]
  - FLUID RETENTION [None]
  - WEIGHT INCREASED [None]
  - WEIGHT DECREASED [None]
